FAERS Safety Report 17571747 (Version 1)
Quarter: 2020Q1

REPORT INFORMATION
  Report Type: Spontaneous
  Country: US (occurrence: US)
  Receive Date: 20200317
  Receipt Date: 20200317
  Transmission Date: 20200409
  Serious: Yes (Hospitalization)
  Sender: FDA-Public Use
  Company Number: None

PATIENT
  Age: 30 Year
  Sex: Female

DRUGS (16)
  1. METFORMIN [Concomitant]
     Active Substance: METFORMIN HYDROCHLORIDE
  2. POTASSIUM [Concomitant]
     Active Substance: POTASSIUM
  3. METHOCARBAM [Concomitant]
     Active Substance: METHOCARBAMOL
  4. SYNTHROID [Concomitant]
     Active Substance: LEVOTHYROXINE SODIUM
  5. TIZANIDINE. [Concomitant]
     Active Substance: TIZANIDINE
  6. METHOTREXATE. [Concomitant]
     Active Substance: METHOTREXATE
  7. ENBREL [Suspect]
     Active Substance: ETANERCEPT
     Indication: RHEUMATOID ARTHRITIS
     Route: 058
     Dates: start: 20200222
  8. OXYCODONE [Concomitant]
     Active Substance: OXYCODONE
  9. PLAQUENIL [Concomitant]
     Active Substance: HYDROXYCHLOROQUINE SULFATE
  10. SMZ/TMP [Suspect]
     Active Substance: SULFAMETHOXAZOLE\TRIMETHOPRIM
  11. HYDRALAZINE [Concomitant]
     Active Substance: HYDRALAZINE HYDROCHLORIDE
  12. HYDROMORPHON [Concomitant]
     Active Substance: HYDROMORPHONE
  13. PRAVASTATIN. [Concomitant]
     Active Substance: PRAVASTATIN
  14. METOPROLOL TARTRATE. [Concomitant]
     Active Substance: METOPROLOL TARTRATE
  15. NEURONTIN [Concomitant]
     Active Substance: GABAPENTIN
  16. SULFASALAZINE DELAYED-RELEASE [Concomitant]
     Active Substance: SULFASALAZINE

REACTIONS (2)
  - Fall [None]
  - Spinal column injury [None]

NARRATIVE: CASE EVENT DATE: 20200309
